FAERS Safety Report 16909510 (Version 2)
Quarter: 2019Q4

REPORT INFORMATION
  Report Type: Spontaneous
  Country: SE (occurrence: SE)
  Receive Date: 20191011
  Receipt Date: 20191224
  Transmission Date: 20200122
  Serious: Yes (Hospitalization)
  Sender: FDA-Public Use
  Company Number: SE-ASTRAZENECA-2019SF40818

PATIENT
  Age: 2 Year
  Sex: Female
  Weight: 13 kg

DRUGS (2)
  1. OMEPRAZOLE. [Suspect]
     Active Substance: OMEPRAZOLE
     Dosage: 20.0MG UNKNOWN
     Route: 048
     Dates: start: 20180907, end: 20180907
  2. LERGIGAN (PROMETHAZINE HYDROCHLORIDE) [Suspect]
     Active Substance: PROMETHAZINE HYDROCHLORIDE
     Dosage: 25.0MG UNKNOWN
     Route: 048
     Dates: start: 20180907, end: 20180907

REACTIONS (3)
  - Accidental exposure to product by child [Unknown]
  - Accidental overdose [Unknown]
  - Somnolence [Unknown]

NARRATIVE: CASE EVENT DATE: 20180907
